FAERS Safety Report 8398375 (Version 2)
Quarter: 2013Q2

REPORT INFORMATION
  Report Type: Report from Study
  Country: JP (occurrence: JP)
  Receive Date: 20120209
  Receipt Date: 20130423
  Transmission Date: 20140414
  Serious: Yes (Hospitalization)
  Sender: FDA-Public Use
  Company Number: JP-ROCHE-1037066

PATIENT
  Age: 38 Year
  Sex: Male

DRUGS (8)
  1. RITUXIMAB [Suspect]
     Indication: PROPHYLAXIS AGAINST TRANSPLANT REJECTION
     Route: 042
     Dates: start: 20120111, end: 20120111
  2. MYCOPHENOLATE MOFETIL [Suspect]
     Indication: PROPHYLAXIS AGAINST TRANSPLANT REJECTION
     Route: 048
     Dates: start: 20111229, end: 20120117
  3. METHYLPREDNISOLONE [Suspect]
     Indication: PROPHYLAXIS AGAINST TRANSPLANT REJECTION
     Route: 048
     Dates: start: 20111229, end: 20120117
  4. CALONAL [Concomitant]
     Dosage: GIVEN PRIOR TO EACH RITUXIMAB INFUSION
     Route: 048
     Dates: start: 20120111
  5. POLARAMINE [Concomitant]
     Dosage: GIVEN PRIOR TO EACH RITUXIMAB INFUSION
     Route: 048
     Dates: start: 20120111
  6. LASIX [Concomitant]
     Indication: RENAL FAILURE CHRONIC
     Route: 048
     Dates: end: 20120117
  7. CARVEDILOL [Concomitant]
     Indication: HYPERTENSION
     Route: 048
  8. VALSARTAN [Concomitant]
     Indication: HYPERTENSION
     Route: 048

REACTIONS (1)
  - Duodenal ulcer [Recovered/Resolved]
